FAERS Safety Report 21265764 (Version 1)
Quarter: 2022Q3

REPORT INFORMATION
  Report Type: Spontaneous
  Country: US (occurrence: None)
  Receive Date: 20220828
  Receipt Date: 20220828
  Transmission Date: 20221026
  Serious: Yes (Life-Threatening)
  Sender: FDA-Public Use
  Company Number: None

PATIENT
  Age: 36 Year
  Sex: Female
  Weight: 59.4 kg

DRUGS (2)
  1. BENADRYL EXTRA STRENGTH ITCH COOLING [Suspect]
     Active Substance: DIPHENHYDRAMINE HYDROCHLORIDE\ZINC ACETATE
     Indication: Food poisoning
     Dosage: FREQUENCY : 3 TIMES A DAY;?
     Dates: start: 20220822, end: 20220827
  2. VITAMINS [Concomitant]
     Active Substance: VITAMINS

REACTIONS (6)
  - Rash [None]
  - Accidental poisoning [None]
  - Application site pruritus [None]
  - Application site swelling [None]
  - Burning sensation [None]
  - Peripheral swelling [None]

NARRATIVE: CASE EVENT DATE: 20220827
